FAERS Safety Report 8976068 (Version 1)
Quarter: 2012Q4

REPORT INFORMATION
  Report Type: Report from Study
  Country: CA (occurrence: CA)
  Receive Date: 20121220
  Receipt Date: 20121220
  Transmission Date: 20130627
  Serious: Yes (Other)
  Sender: FDA-Public Use
  Company Number: CA-ROCHE-1161826

PATIENT
  Age: 64 Year
  Sex: Female

DRUGS (5)
  1. OMALIZUMAB [Suspect]
     Indication: PRODUCT USED FOR UNKNOWN INDICATION
     Route: 065
     Dates: start: 20070214
  2. BIAXIN (CANADA) [Concomitant]
  3. PREDNISONE [Concomitant]
     Route: 065
  4. PREDNISONE [Concomitant]
     Route: 065
  5. PREDNISONE [Concomitant]
     Route: 065

REACTIONS (17)
  - Dyspnoea [Not Recovered/Not Resolved]
  - Anaphylactic reaction [Unknown]
  - Hypoventilation [Unknown]
  - Sinusitis [Unknown]
  - Blood glucose increased [Unknown]
  - Chest discomfort [Unknown]
  - Vomiting [Unknown]
  - Anxiety [Unknown]
  - Lung infection [Unknown]
  - Productive cough [Unknown]
  - Device occlusion [Unknown]
  - Pulmonary congestion [Unknown]
  - Unevaluable event [Unknown]
  - Wheezing [Unknown]
  - Nasopharyngitis [Unknown]
  - Diarrhoea [Unknown]
  - Nausea [Unknown]
